FAERS Safety Report 6029006-6 (Version None)
Quarter: 2009Q1

REPORT INFORMATION
  Report Type: 
  Country: None (occurrence: None)
  Receive Date: 20090106
  Receipt Date: 20081230
  Transmission Date: 20090719
  Serious: Yes (Life-Threatening, Hospitalization)
  Sender: FDA-Public Use
  Company Number: US-JNJFOC-20081004390

PATIENT
  Sex: Female
  Weight: 68.95 kg

DRUGS (2)
  1. TYLENOL W/ CODEINE [Suspect]
     Indication: PAIN
     Route: 048
  2. TYLENOL W/ CODEINE [Suspect]
     Indication: INTENTIONAL DRUG MISUSE
     Route: 048

REACTIONS (6)
  - BLOOD SODIUM DECREASED [None]
  - CHEST PAIN [None]
  - INTENTIONAL DRUG MISUSE [None]
  - INTENTIONAL OVERDOSE [None]
  - LOSS OF CONSCIOUSNESS [None]
  - PSYCHOTIC DISORDER [None]
